FAERS Safety Report 7518979 (Version 5)
Quarter: 2013Q3

REPORT INFORMATION
  Report Type: Report from Study
  Country: FR (occurrence: FR)
  Receive Date: 20100802
  Receipt Date: 20130712
  Transmission Date: 20140515
  Serious: Yes (Hospitalization, Disabling)
  Sender: FDA-Public Use
  Company Number: FR-ABBOTT-10P-056-0660110-01

PATIENT
  Age: 79 Year
  Sex: Male
  Weight: 71 kg

DRUGS (12)
  1. KALETRA TABLETS [Suspect]
     Indication: HIV INFECTION
     Route: 048
     Dates: start: 20091112, end: 20100526
  2. KALETRA TABLETS [Suspect]
     Dates: start: 20100601, end: 20100729
  3. CRESTOR [Concomitant]
     Indication: DYSLIPIDAEMIA
     Route: 048
     Dates: start: 20061213, end: 20100424
  4. CRESTOR [Concomitant]
     Dates: start: 20100510
  5. COAPROVEL [Concomitant]
     Indication: HYPERTENSION
     Route: 048
     Dates: start: 2004, end: 20100424
  6. COAPROVEL [Concomitant]
     Dates: start: 20100510
  7. PREVISCAN [Concomitant]
     Indication: EMBOLISM
     Route: 048
     Dates: start: 20040706, end: 20100424
  8. PREVISCAN [Concomitant]
     Dates: start: 20100510, end: 20100610
  9. MOPRAL [Concomitant]
     Indication: OESOPHAGITIS HAEMORRHAGIC
     Route: 048
     Dates: start: 20040119, end: 20100424
  10. MOPRAL [Concomitant]
     Dates: start: 20100510, end: 20100604
  11. LEXOMIL [Concomitant]
     Indication: INSOMNIA
     Route: 048
     Dates: start: 20091207, end: 20100424
  12. LEXOMIL [Concomitant]
     Dates: start: 20100510, end: 20101219

REACTIONS (4)
  - Loss of consciousness [Recovering/Resolving]
  - Confusional state [Recovered/Resolved]
  - Grand mal convulsion [Recovered/Resolved]
  - Cerebrovascular disorder [Recovered/Resolved]
